FAERS Safety Report 10473747 (Version 1)
Quarter: 2014Q3

REPORT INFORMATION
  Report Type: Spontaneous
  Country: US (occurrence: US)
  Receive Date: 20140924
  Receipt Date: 20140924
  Transmission Date: 20150326
  Serious: Yes (Congenital Anomaly)
  Sender: FDA-Public Use
  Company Number: US-FRI-1000070807

PATIENT
  Age: 0 Day
  Sex: Male

DRUGS (1)
  1. CELEXA [Suspect]
     Active Substance: CITALOPRAM HYDROBROMIDE
     Dates: end: 20110529

REACTIONS (3)
  - Congenital pulmonary hypertension [Unknown]
  - Congenital anomaly [Unknown]
  - Bronchopulmonary dysplasia [Unknown]

NARRATIVE: CASE EVENT DATE: 20110529
